FAERS Safety Report 6477456-6 (Version None)
Quarter: 2009Q4

REPORT INFORMATION
  Report Type: 
  Country: None (occurrence: None)
  Receive Date: 20091207
  Receipt Date: 20091201
  Transmission Date: 20100525
  Serious: Yes (Life-Threatening)
  Sender: FDA-Public Use
  Company Number: JP-SANOFI-AVENTIS-2009SA001430

PATIENT
  Age: 74 Year
  Sex: Male
  Weight: 56 kg

DRUGS (10)
  1. ALLEGRA [Suspect]
     Route: 048
     Dates: end: 20090615
  2. ALLEGRA [Suspect]
  3. ANCARON [Suspect]
     Dates: start: 20030101, end: 20090611
  4. METHYCOBAL [Concomitant]
     Route: 048
  5. ARTIST [Concomitant]
     Route: 048
  6. ASPIRIN [Concomitant]
  7. LASIX [Concomitant]
  8. ALDACTONE [Concomitant]
  9. TAKEPRON [Concomitant]
  10. ACECOL [Concomitant]

REACTIONS (1)
  - LUNG DISORDER [None]
